FAERS Safety Report 5365871-3 (Version None)
Quarter: 2007Q2

REPORT INFORMATION
  Report Type: 
  Country: None (occurrence: None)
  Receive Date: 20070611
  Receipt Date: 20061103
  Transmission Date: 20071010
  Serious: Yes (Death, Other)
  Sender: FDA-Public Use
  Company Number: USA-2006-0025983

PATIENT
  Age: 21 Year
  Sex: Male
  Weight: 101.1 kg

DRUGS (2)
  1. OXYCONTIN [Suspect]
     Indication: ALCOHOL USE
     Dosage: 6 TABLET, SINGLE, (CONT)
  2. ALCOHOL (ETHANOL) [Suspect]
     Indication: ALCOHOLISM

REACTIONS (4)
  - MULTIPLE DRUG OVERDOSE ACCIDENTAL [None]
  - POISONING [None]
  - SUBSTANCE ABUSE [None]
  - UNRESPONSIVE TO STIMULI [None]
